FAERS Safety Report 18299636 (Version 2)
Quarter: 2020Q4

REPORT INFORMATION
  Report Type: Report from Study
  Country: SA (occurrence: SA)
  Receive Date: 20200923
  Receipt Date: 20201125
  Transmission Date: 20210113
  Serious: No
  Sender: FDA-Public Use
  Company Number: SA-CELLTRION INC.-2020SA028071

PATIENT

DRUGS (28)
  1. ACETAMINOPHEN. [Concomitant]
     Active Substance: ACETAMINOPHEN
     Indication: PREMEDICATION
     Dosage: 1000 MG, 1 IN 1 D
     Route: 048
     Dates: start: 20190416, end: 20190416
  2. ACETAMINOPHEN. [Concomitant]
     Active Substance: ACETAMINOPHEN
     Dosage: 1000 MG, 1 IN 1 D
     Route: 048
     Dates: start: 20200303, end: 20200303
  3. DIPHENHYDRAMINE. [Concomitant]
     Active Substance: DIPHENHYDRAMINE
     Dosage: 50 MG. 1 IN 1 D
     Route: 048
     Dates: start: 20190723, end: 20190723
  4. DIPHENHYDRAMINE. [Concomitant]
     Active Substance: DIPHENHYDRAMINE
     Dosage: 25 MG. 1 IN 1 D
     Route: 048
     Dates: start: 20200107, end: 20200107
  5. REMSIMA [Suspect]
     Active Substance: INFLIXIMAB
     Dosage: 1000 MG
     Route: 042
     Dates: start: 20200303, end: 20200303
  6. DIPHENHYDRAMINE. [Concomitant]
     Active Substance: DIPHENHYDRAMINE
     Dosage: 50 MG. 1 IN 1 D
     Route: 048
     Dates: start: 20191112, end: 20191112
  7. AZATHIOPRINE. [Concomitant]
     Active Substance: AZATHIOPRINE
     Indication: CROHN^S DISEASE
     Route: 048
  8. ACETAMINOPHEN. [Concomitant]
     Active Substance: ACETAMINOPHEN
     Dosage: 1000 MG, 1 IN 1 D
     Route: 048
     Dates: start: 20190723, end: 20190723
  9. CHOLECALCIFEROL [Concomitant]
     Active Substance: CHOLECALCIFEROL
     Indication: OSTEOPOROSIS PROPHYLAXIS
     Dosage: 3214.2857 IU (45000 IU, 1 IN 2 WK
     Route: 048
     Dates: start: 20190805
  10. FENTANYL CITRATE. [Concomitant]
     Active Substance: FENTANYL CITRATE
     Indication: COLONOSCOPY
     Dosage: 50 MICROGRAM, 1 IN 1 D
     Route: 040
     Dates: start: 20190827, end: 20190827
  11. ERGOCALCIFEROL. [Concomitant]
     Active Substance: ERGOCALCIFEROL
     Indication: VITAMIN SUPPLEMENTATION
     Dosage: 5000 IU, 1 IN 1 D
     Route: 048
     Dates: start: 20190415, end: 20190615
  12. DIPHENHYDRAMINE. [Concomitant]
     Active Substance: DIPHENHYDRAMINE
     Dosage: 50 MG. 1 IN 1 D
     Route: 048
     Dates: start: 20190528, end: 20190528
  13. DIPHENHYDRAMINE. [Concomitant]
     Active Substance: DIPHENHYDRAMINE
     Dosage: 50 MG. 1 IN 1 D
     Route: 048
     Dates: start: 20190917, end: 20190917
  14. REMSIMA [Suspect]
     Active Substance: INFLIXIMAB
     Dosage: 1000 MG
     Route: 042
     Dates: start: 20190917, end: 20190917
  15. DIPHENHYDRAMINE. [Concomitant]
     Active Substance: DIPHENHYDRAMINE
     Indication: PREMEDICATION
     Dosage: 50 MG. 1 IN 1 D
     Route: 048
     Dates: start: 20190416, end: 20190416
  16. DIPHENHYDRAMINE. [Concomitant]
     Active Substance: DIPHENHYDRAMINE
     Dosage: 25 MG. 1 IN 1 D
     Route: 048
     Dates: start: 20200303, end: 20200303
  17. LACTULOSE. [Concomitant]
     Active Substance: LACTULOSE
     Indication: CONSTIPATION
     Dosage: 5 ML, 1 IN 1 D
     Route: 048
     Dates: start: 20200303, end: 20200303
  18. REMSIMA [Suspect]
     Active Substance: INFLIXIMAB
     Indication: CROHN^S DISEASE
     Dosage: 1110 MG
     Route: 042
     Dates: start: 20190528, end: 20190528
  19. REMSIMA [Suspect]
     Active Substance: INFLIXIMAB
     Dosage: 1000 MG
     Route: 042
     Dates: start: 20200107, end: 20200107
  20. REMSIMA [Suspect]
     Active Substance: INFLIXIMAB
     Dosage: 1000 MG, Q 24 HR
     Route: 042
     Dates: start: 20200428
  21. REMSIMA [Suspect]
     Active Substance: INFLIXIMAB
     Dosage: 100 MG, EVERY 24 HOURS
     Dates: start: 20200428
  22. ACETAMINOPHEN. [Concomitant]
     Active Substance: ACETAMINOPHEN
     Dosage: 1000 MG, 1 IN 1 D
     Route: 048
     Dates: start: 20190528, end: 20190528
  23. ACETAMINOPHEN. [Concomitant]
     Active Substance: ACETAMINOPHEN
     Dosage: 1000 MG, 1 IN 1 D
     Route: 048
     Dates: start: 20190917, end: 20190917
  24. ACETAMINOPHEN. [Concomitant]
     Active Substance: ACETAMINOPHEN
     Dosage: 1000 MG, 1 IN 1 D
     Route: 048
     Dates: start: 20191112, end: 20191112
  25. REMSIMA [Suspect]
     Active Substance: INFLIXIMAB
     Dosage: 1000 MG
     Route: 042
     Dates: start: 20191112, end: 20191112
  26. ACETAMINOPHEN. [Concomitant]
     Active Substance: ACETAMINOPHEN
     Dosage: 1000 MG, 1 IN 1 D
     Route: 048
     Dates: start: 20200107, end: 20200107
  27. REMSIMA [Suspect]
     Active Substance: INFLIXIMAB
     Dosage: 1000 MG
     Route: 042
     Dates: start: 20190723, end: 20190723
  28. MIDAZOLAM. [Concomitant]
     Active Substance: MIDAZOLAM
     Indication: COLONOSCOPY
     Dosage: 3 MG, 1 IN 1D
     Route: 040
     Dates: start: 20190827, end: 20190827

REACTIONS (4)
  - No adverse event [Unknown]
  - Off label use [Unknown]
  - Product use issue [Unknown]
  - Overdose [Unknown]
